FAERS Safety Report 23353460 (Version 3)
Quarter: 2024Q1

REPORT INFORMATION
  Report Type: Spontaneous
  Country: FR (occurrence: FR)
  Receive Date: 20231231
  Receipt Date: 20240110
  Transmission Date: 20240410
  Serious: Yes (Death, Other)
  Sender: FDA-Public Use
  Company Number: FR-JNJFOC-20231265069

PATIENT
  Sex: Male

DRUGS (5)
  1. ERDAFITINIB [Suspect]
     Active Substance: ERDAFITINIB
     Indication: Transitional cell carcinoma
     Dosage: FIRST LINE TREATMENT
     Route: 065
     Dates: start: 20221010, end: 20230417
  2. ERDAFITINIB [Suspect]
     Active Substance: ERDAFITINIB
     Dosage: SECOND LINE TREATMENT
     Route: 065
     Dates: start: 20230515, end: 20230807
  3. ERDAFITINIB [Suspect]
     Active Substance: ERDAFITINIB
     Dosage: THIRD LINE TREATMENT
     Route: 065
     Dates: start: 20230821, end: 20231009
  4. ERDAFITINIB [Suspect]
     Active Substance: ERDAFITINIB
     Dosage: DOSE OF ERDAFITINIB WAS REDUCED TO 6MG/DAY.
     Route: 065
  5. ERDAFITINIB [Suspect]
     Active Substance: ERDAFITINIB
     Dosage: LATEST DAILY ERDAFITINIB DOSE
     Route: 065

REACTIONS (3)
  - Respiratory distress [Fatal]
  - Sepsis [Fatal]
  - Hepatotoxicity [Unknown]
